FAERS Safety Report 15860024 (Version 3)
Quarter: 2019Q2

REPORT INFORMATION
  Report Type: Report from Study
  Country: IN (occurrence: IN)
  Receive Date: 20190123
  Receipt Date: 20190404
  Transmission Date: 20190711
  Serious: Yes (Hospitalization, Other)
  Sender: FDA-Public Use
  Company Number: IN-BAYER-2019-014102

PATIENT
  Age: 59 Year
  Sex: Male

DRUGS (6)
  1. NEXAVAR [Suspect]
     Active Substance: SORAFENIB
     Indication: HEPATOCELLULAR CARCINOMA
     Dosage: 200 MG
     Route: 048
     Dates: start: 20180720
  2. NOVASEN [Concomitant]
     Dosage: UNK
  3. REGORAFENIB. [Suspect]
     Active Substance: REGORAFENIB
     Indication: HEPATOCELLULAR CARCINOMA
     Dosage: UNK
  4. NEXAVAR [Suspect]
     Active Substance: SORAFENIB
     Indication: HEPATOCELLULAR CARCINOMA
     Dosage: DAILY DOSE 400 MG
     Route: 048
     Dates: start: 201808, end: 201812
  5. INSULIN [Concomitant]
     Active Substance: INSULIN NOS
     Indication: DIABETES MELLITUS
     Dosage: DOSAGE REDUCED
  6. INSULIN [Concomitant]
     Active Substance: INSULIN NOS
     Indication: DIABETES MELLITUS
     Dosage: 30 U, TID

REACTIONS (16)
  - Renal disorder [None]
  - Skin discolouration [None]
  - Skin exfoliation [None]
  - Somnolence [None]
  - Blood creatinine increased [None]
  - Fatigue [Recovered/Resolved]
  - Liver disorder [None]
  - Acne [None]
  - Alpha 1 foetoprotein increased [None]
  - Metastases to lymph nodes [None]
  - Ascites [None]
  - Pancreatic disorder [None]
  - Renal failure [None]
  - Pruritus [None]
  - Vital functions abnormal [None]
  - General physical health deterioration [None]
